FAERS Safety Report 5530668-8 (Version None)
Quarter: 2007Q4

REPORT INFORMATION
  Report Type: 
  Country: None (occurrence: None)
  Receive Date: 20071128
  Receipt Date: 20071128
  Transmission Date: 20080405
  Serious: Yes (Hospitalization)
  Sender: FDA-Public Use
  Company Number: None

PATIENT
  Age: 55 Year
  Sex: Female
  Weight: 79 kg

DRUGS (6)
  1. WARFARIN SODIUM [Suspect]
     Indication: MYOCARDIAL INFARCTION
     Dosage: 5MG PO QD LONG TIME
     Route: 048
  2. BACTRIM DS [Suspect]
     Indication: ABSCESS
     Dosage: 1 TAB PO BID
     Route: 048
  3. ASPIRIN [Concomitant]
  4. ENALAPRIL [Concomitant]
  5. LASIX [Concomitant]
  6. ZOCOR [Concomitant]

REACTIONS (11)
  - ABSCESS NECK [None]
  - BLOOD CREATININE INCREASED [None]
  - BLOOD PRESSURE DECREASED [None]
  - BLOOD UREA INCREASED [None]
  - CHILLS [None]
  - DIARRHOEA [None]
  - INTERNATIONAL NORMALISED RATIO INCREASED [None]
  - MALAISE [None]
  - PYREXIA [None]
  - RECTAL HAEMORRHAGE [None]
  - RESPIRATORY RATE INCREASED [None]
